FAERS Safety Report 15458920 (Version 1)
Quarter: 2018Q4

REPORT INFORMATION
  Report Type: Spontaneous
  Country: US (occurrence: US)
  Receive Date: 20181003
  Receipt Date: 20181003
  Transmission Date: 20190204
  Serious: No
  Sender: FDA-Public Use
  Company Number: US-SA-2018SA272184

PATIENT
  Sex: Male

DRUGS (3)
  1. AUBAGIO [Suspect]
     Active Substance: TERIFLUNOMIDE
     Dosage: 7 MG
  2. EMERGEN C [Concomitant]
     Active Substance: MINERALS\VITAMINS
  3. VITAMIN C [ASCORBIC ACID] [Concomitant]

REACTIONS (1)
  - Abdominal pain upper [Not Recovered/Not Resolved]
